FAERS Safety Report 24644724 (Version 1)
Quarter: 2024Q4

REPORT INFORMATION
  Report Type: Spontaneous
  Country: CA (occurrence: CA)
  Receive Date: 20241121
  Receipt Date: 20241121
  Transmission Date: 20250114
  Serious: Yes (Death, Life-Threatening, Hospitalization, Disabling, Congenital Anomaly, Other)
  Sender: Haleon PLC
  Company Number: CA-002147023-NVSC2024CA101387

PATIENT
  Age: 48 Year
  Sex: Female

DRUGS (64)
  1. CETIRIZINE HYDROCHLORIDE [Suspect]
     Active Substance: CETIRIZINE HYDROCHLORIDE
     Indication: Rheumatoid arthritis
     Route: 048
  2. CETIRIZINE HYDROCHLORIDE [Suspect]
     Active Substance: CETIRIZINE HYDROCHLORIDE
     Route: 048
  3. CALTRATE WITH VITAMIN D [Suspect]
     Active Substance: CALCIUM CARBONATE\CHOLECALCIFEROL
     Indication: Product used for unknown indication
  4. PREDNISONE [Suspect]
     Active Substance: PREDNISONE
     Indication: Product used for unknown indication
     Route: 048
  5. PREDNISONE [Suspect]
     Active Substance: PREDNISONE
     Route: 048
  6. PREDNISONE [Suspect]
     Active Substance: PREDNISONE
     Route: 048
  7. DICLOFENAC POTASSIUM [Suspect]
     Active Substance: DICLOFENAC POTASSIUM
     Indication: Product used for unknown indication
     Route: 058
  8. ADALIMUMAB [Suspect]
     Active Substance: ADALIMUMAB
     Indication: Rheumatoid arthritis
     Route: 058
  9. ETANERCEPT [Suspect]
     Active Substance: ETANERCEPT
     Indication: Rheumatoid arthritis
     Route: 058
  10. ETANERCEPT [Suspect]
     Active Substance: ETANERCEPT
     Route: 065
  11. ETANERCEPT [Suspect]
     Active Substance: ETANERCEPT
     Route: 058
  12. DESOXIMETASONE [Suspect]
     Active Substance: DESOXIMETASONE
     Indication: Rheumatoid arthritis
     Route: 067
  13. DESOXIMETASONE [Suspect]
     Active Substance: DESOXIMETASONE
     Route: 048
  14. DESOXIMETASONE [Suspect]
     Active Substance: DESOXIMETASONE
     Route: 003
  15. DESOXIMETASONE [Suspect]
     Active Substance: DESOXIMETASONE
     Route: 048
  16. DESOXIMETASONE [Suspect]
     Active Substance: DESOXIMETASONE
     Route: 003
  17. DESOXIMETASONE [Suspect]
     Active Substance: DESOXIMETASONE
     Route: 048
  18. DESOXIMETASONE [Suspect]
     Active Substance: DESOXIMETASONE
     Route: 058
  19. FOSAMAX [Suspect]
     Active Substance: ALENDRONATE SODIUM
     Indication: Rheumatoid arthritis
     Route: 048
  20. FOSAMAX [Suspect]
     Active Substance: ALENDRONATE SODIUM
     Indication: Product used for unknown indication
     Dosage: UNK (TABLETS)
     Route: 058
  21. FOSAMAX [Suspect]
     Active Substance: ALENDRONATE SODIUM
     Route: 016
  22. ARAVA [Suspect]
     Active Substance: LEFLUNOMIDE
     Indication: Rheumatoid arthritis
     Route: 048
  23. ARAVA [Suspect]
     Active Substance: LEFLUNOMIDE
     Indication: Product used for unknown indication
     Route: 048
  24. ARAVA [Suspect]
     Active Substance: LEFLUNOMIDE
     Route: 005
  25. CORTISONE ACETATE [Suspect]
     Active Substance: CORTISONE ACETATE
     Indication: Rheumatoid arthritis
     Route: 061
  26. CORTISONE ACETATE [Suspect]
     Active Substance: CORTISONE ACETATE
     Route: 048
  27. CORTISONE ACETATE [Suspect]
     Active Substance: CORTISONE ACETATE
     Dosage: UNK (OINTMENT)
     Route: 061
  28. CIMZIA [Suspect]
     Active Substance: CERTOLIZUMAB PEGOL
     Indication: Product used for unknown indication
     Route: 058
  29. CIMZIA [Suspect]
     Active Substance: CERTOLIZUMAB PEGOL
     Indication: Rheumatoid arthritis
  30. ALENDRONATE SODIUM [Suspect]
     Active Substance: ALENDRONATE SODIUM
     Indication: Product used for unknown indication
     Route: 048
  31. ALENDRONATE SODIUM [Suspect]
     Active Substance: ALENDRONATE SODIUM
     Indication: Rheumatoid arthritis
     Route: 016
  32. CERTOLIZUMAB PEGOL [Suspect]
     Active Substance: CERTOLIZUMAB PEGOL
     Indication: Product used for unknown indication
     Route: 058
  33. CERTOLIZUMAB PEGOL [Suspect]
     Active Substance: CERTOLIZUMAB PEGOL
     Indication: Rheumatoid arthritis
  34. HUMIRA [Suspect]
     Active Substance: ADALIMUMAB
     Indication: Psoriatic arthropathy
     Route: 058
  35. HUMIRA [Suspect]
     Active Substance: ADALIMUMAB
     Indication: Rheumatoid arthritis
     Route: 058
  36. COSENTYX [Suspect]
     Active Substance: SECUKINUMAB
     Indication: Product used for unknown indication
     Route: 005
  37. COSENTYX [Suspect]
     Active Substance: SECUKINUMAB
     Indication: Rheumatoid arthritis
     Route: 065
  38. ASACOL [Suspect]
     Active Substance: MESALAMINE
     Indication: Crohn^s disease
     Route: 065
  39. CHLORHEXIDINE ACETATE [Suspect]
     Active Substance: CHLORHEXIDINE ACETATE
     Indication: Product used for unknown indication
     Route: 061
  40. DICLOFENAC SODIUM [Suspect]
     Active Substance: DICLOFENAC SODIUM
     Indication: Product used for unknown indication
  41. PSEUDOEPHEDRINE HYDROCHLORIDE [Suspect]
     Active Substance: PSEUDOEPHEDRINE HYDROCHLORIDE
     Indication: Rheumatoid arthritis
     Route: 048
  42. PSEUDOEPHEDRINE HYDROCHLORIDE [Suspect]
     Active Substance: PSEUDOEPHEDRINE HYDROCHLORIDE
     Indication: Product used for unknown indication
     Route: 065
  43. PSEUDOEPHEDRINE HYDROCHLORIDE [Suspect]
     Active Substance: PSEUDOEPHEDRINE HYDROCHLORIDE
     Route: 067
  44. COSENTYX [Concomitant]
     Active Substance: SECUKINUMAB
     Indication: Product used for unknown indication
  45. ALENDRONIC ACID [Suspect]
     Active Substance: ALENDRONIC ACID
     Indication: Rheumatoid arthritis
     Route: 016
  46. ALENDRONIC ACID [Suspect]
     Active Substance: ALENDRONIC ACID
     Route: 048
  47. ACTEMRA [Suspect]
     Active Substance: TOCILIZUMAB
     Indication: Rheumatoid arthritis
     Route: 048
  48. ACTEMRA [Suspect]
     Active Substance: TOCILIZUMAB
     Route: 042
  49. ACTEMRA [Suspect]
     Active Substance: TOCILIZUMAB
     Route: 065
  50. ACTEMRA [Suspect]
     Active Substance: TOCILIZUMAB
     Route: 016
  51. FOLIC ACID [Suspect]
     Active Substance: FOLIC ACID
     Indication: Rheumatoid arthritis
     Route: 048
  52. FOLIC ACID [Suspect]
     Active Substance: FOLIC ACID
     Route: 048
  53. FOLIC ACID [Suspect]
     Active Substance: FOLIC ACID
     Route: 065
  54. FOLIC ACID [Suspect]
     Active Substance: FOLIC ACID
     Route: 048
  55. FOLIC ACID [Suspect]
     Active Substance: FOLIC ACID
     Route: 058
  56. CHILDRENS ADVIL [Suspect]
     Active Substance: IBUPROFEN
     Indication: Product used for unknown indication
     Route: 048
  57. CHLORHEXIDINE GLUCONATE APPLICATOR [Suspect]
     Active Substance: CHLORHEXIDINE GLUCONATE\ISOPROPYL ALCOHOL
     Indication: Product used for unknown indication
     Route: 061
  58. PANADOL [Suspect]
     Active Substance: ACETAMINOPHEN
     Indication: Product used for unknown indication
  59. HYDROCORTISONE [Suspect]
     Active Substance: HYDROCORTISONE
     Indication: Product used for unknown indication
  60. FLUMETHASONE PIVALATE [Suspect]
     Active Substance: FLUMETHASONE PIVALATE
     Indication: Product used for unknown indication
     Route: 065
  61. FLUMETHASONE PIVALATE [Suspect]
     Active Substance: FLUMETHASONE PIVALATE
     Indication: Rheumatoid arthritis
  62. ENBREL [Suspect]
     Active Substance: ETANERCEPT
     Indication: Product used for unknown indication
     Route: 058
  63. ENBREL [Suspect]
     Active Substance: ETANERCEPT
     Indication: Rheumatoid arthritis
     Route: 058
  64. ENBREL [Suspect]
     Active Substance: ETANERCEPT
     Route: 058

REACTIONS (151)
  - Lung disorder [Fatal]
  - Liver disorder [Fatal]
  - Exostosis [Fatal]
  - Infection [Fatal]
  - Lupus-like syndrome [Fatal]
  - Obesity [Fatal]
  - Contusion [Fatal]
  - Autoimmune disorder [Fatal]
  - Hepatic enzyme increased [Fatal]
  - Laryngitis [Fatal]
  - Hypersensitivity [Fatal]
  - Pain in extremity [Fatal]
  - Hip arthroplasty [Fatal]
  - Breast cancer stage II [Fatal]
  - Arthritis [Fatal]
  - Hepatic cirrhosis [Fatal]
  - Muscular weakness [Fatal]
  - Lupus vulgaris [Fatal]
  - Abdominal pain [Fatal]
  - Peripheral swelling [Fatal]
  - Depression [Fatal]
  - General physical health deterioration [Fatal]
  - Liver function test increased [Fatal]
  - Dizziness [Fatal]
  - Asthma [Fatal]
  - Diarrhoea [Fatal]
  - Upper respiratory tract infection [Fatal]
  - Joint swelling [Fatal]
  - Systemic lupus erythematosus [Fatal]
  - Helicobacter infection [Fatal]
  - Impaired healing [Fatal]
  - Chest pain [Fatal]
  - Stomatitis [Fatal]
  - Prescribed underdose [Fatal]
  - Periorbital oedema [Fatal]
  - Therapeutic response decreased [Fatal]
  - Visual impairment [Fatal]
  - Pyrexia [Fatal]
  - Seronegative arthritis [Fatal]
  - C-reactive protein [Fatal]
  - Musculoskeletal pain [Fatal]
  - Osteoporosis [Fatal]
  - Mobility decreased [Fatal]
  - Dry mouth [Fatal]
  - Rash [Fatal]
  - Joint stiffness [Fatal]
  - Inflammation [Fatal]
  - Spondylitis [Fatal]
  - Osteoarthritis [Fatal]
  - Rheumatoid factor positive [Fatal]
  - Dyspepsia [Fatal]
  - Weight decreased [Fatal]
  - Muscle injury [Fatal]
  - Irritable bowel syndrome [Fatal]
  - Gastrointestinal disorder [Fatal]
  - Bone erosion [Fatal]
  - Glossodynia [Fatal]
  - Muscle spasticity [Fatal]
  - Knee arthroplasty [Fatal]
  - Anti-cyclic citrullinated peptide antibody positive [Fatal]
  - Abdominal pain upper [Fatal]
  - Nasopharyngitis [Fatal]
  - Joint range of motion decreased [Fatal]
  - Confusional state [Fatal]
  - Wound infection [Fatal]
  - Hypoaesthesia [Fatal]
  - Pericarditis [Fatal]
  - Liver injury [Fatal]
  - Fatigue [Fatal]
  - Sleep disorder due to general medical condition, insomnia type [Fatal]
  - Bronchitis [Fatal]
  - Sciatica [Fatal]
  - Grip strength decreased [Fatal]
  - Musculoskeletal stiffness [Fatal]
  - Dislocation of vertebra [Fatal]
  - Alopecia [Fatal]
  - Oedema [Fatal]
  - Tachycardia [Fatal]
  - Sleep disorder [Fatal]
  - Gait inability [Fatal]
  - Lower respiratory tract infection [Fatal]
  - Migraine [Fatal]
  - Malaise [Fatal]
  - Facet joint syndrome [Fatal]
  - Injury [Fatal]
  - Pruritus [Fatal]
  - Discomfort [Fatal]
  - Rheumatoid arthritis [Fatal]
  - Respiratory disorder [Fatal]
  - Drug hypersensitivity [Fatal]
  - X-ray abnormal [Fatal]
  - C-reactive protein abnormal [Fatal]
  - Hypertension [Fatal]
  - Peripheral venous disease [Fatal]
  - Muscle spasms [Fatal]
  - Gait disturbance [Fatal]
  - Blister [Fatal]
  - Fibromyalgia [Fatal]
  - Hand deformity [Fatal]
  - Deep vein thrombosis postoperative [Fatal]
  - Urticaria [Fatal]
  - Delirium [Fatal]
  - Insomnia [Fatal]
  - Anxiety [Fatal]
  - Wheezing [Fatal]
  - Lower limb fracture [Fatal]
  - C-reactive protein increased [Fatal]
  - Nausea [Fatal]
  - Crohn^s disease [Fatal]
  - Adjustment disorder with depressed mood [Fatal]
  - Vomiting [Fatal]
  - Headache [Fatal]
  - Pain [Fatal]
  - Infusion related reaction [Fatal]
  - Duodenal ulcer perforation [Fatal]
  - Anti-cyclic citrullinated peptide antibody [Fatal]
  - Wound [Fatal]
  - Swelling [Fatal]
  - Folliculitis [Fatal]
  - Foot deformity [Fatal]
  - Night sweats [Fatal]
  - Road traffic accident [Fatal]
  - Retinitis [Fatal]
  - Sinusitis [Fatal]
  - Bursitis [Fatal]
  - Paraesthesia [Fatal]
  - Asthenia [Fatal]
  - Hypercholesterolaemia [Fatal]
  - Arthralgia [Fatal]
  - Type 2 diabetes mellitus [Fatal]
  - Memory impairment [Fatal]
  - Weight increased [Fatal]
  - Pneumonia [Fatal]
  - Decreased appetite [Fatal]
  - Psoriasis [Fatal]
  - Synovitis [Fatal]
  - Psoriatic arthropathy [Fatal]
  - Pulmonary fibrosis [Fatal]
  - Swollen joint count increased [Fatal]
  - Joint dislocation [Fatal]
  - Ill-defined disorder [Fatal]
  - Lip dry [Fatal]
  - Dyspnoea [Fatal]
  - Ear pain [Fatal]
  - Amnesia [Fatal]
  - Blood cholesterol increased [Fatal]
  - Ear infection [Fatal]
  - Arthropathy [Fatal]
  - Red blood cell sedimentation rate increased [Fatal]
  - Rheumatic fever [Fatal]
  - Pemphigus [Fatal]
